FAERS Safety Report 5815528-7 (Version None)
Quarter: 2008Q3

REPORT INFORMATION
  Report Type: 
  Country: None (occurrence: None)
  Receive Date: 20080716
  Receipt Date: 20080630
  Transmission Date: 20090109
  Serious: Yes (Other)
  Sender: FDA-Public Use
  Company Number: 8021414

PATIENT
  Age: 6 Month
  Sex: Male
  Weight: 9.6 kg

DRUGS (6)
  1. KEPPRA [Suspect]
     Indication: EPILEPSY
     Dosage: 1000 MG TRP
     Route: 064
     Dates: start: 20050901, end: 20060530
  2. KEPPRA [Suspect]
     Indication: EPILEPSY
     Dosage: 1000 MG TRM
     Route: 063
     Dates: start: 20060531, end: 20061001
  3. PAXIL [Concomitant]
  4. PAXIL [Concomitant]
  5. VITAMIN TAB [Concomitant]
  6. VITAMIN TAB [Concomitant]

REACTIONS (2)
  - INTUSSUSCEPTION [None]
  - MATERNAL DRUGS AFFECTING FOETUS [None]
